FAERS Safety Report 8209453-4 (Version None)
Quarter: 2012Q1

REPORT INFORMATION
  Report Type: 
  Country: None (occurrence: None)
  Receive Date: 20120314
  Receipt Date: 20120306
  Transmission Date: 20120608
  Serious: No
  Sender: FDA-Public Use
  Company Number: US-BAYER-2012-024759

PATIENT
  Age: 43 Year
  Sex: Female
  Weight: 94 kg

DRUGS (3)
  1. CARVEDILOL [Concomitant]
  2. ASPIRIN [Suspect]
     Indication: ISCHAEMIC HEART DISEASE PROPHYLAXIS
     Dosage: 1 TAB DAILY
     Route: 048
     Dates: start: 20120302, end: 20120304
  3. PREDNISONE TAB [Concomitant]

REACTIONS (1)
  - FEELING COLD [None]
